FAERS Safety Report 7761263-8 (Version None)
Quarter: 2011Q3

REPORT INFORMATION
  Report Type: 
  Country: None (occurrence: None)
  Receive Date: 20110920
  Receipt Date: 20110913
  Transmission Date: 20111222
  Serious: Yes (Death)
  Sender: FDA-Public Use
  Company Number: JP-ROCHE-785852

PATIENT
  Sex: Male
  Weight: 51 kg

DRUGS (11)
  1. PREDNISOLONE [Concomitant]
     Route: 046
     Dates: end: 20110423
  2. CALCIUM CARBONATE [Concomitant]
     Dosage: CALTAN OD(PRECPITATED CALCIUM CARBONATE)
     Route: 048
     Dates: end: 20110423
  3. DOPS [Concomitant]
     Dosage: PERORAL AGENT
     Route: 048
     Dates: end: 20110423
  4. TOCILIZUMAB [Suspect]
     Indication: CASTLEMAN'S DISEASE
     Dosage: DOSE: 8 MG/KG
     Route: 041
     Dates: start: 20110421, end: 20110421
  5. ITRACONAZOLE [Concomitant]
     Dosage: PERORAL LIQUID PREPARATION
     Route: 048
     Dates: end: 20110423
  6. MUCOSTA [Concomitant]
     Dosage: PERORAL AGENT
     Route: 048
     Dates: end: 20110423
  7. MIDODRINE HYDROCHLORIDE [Concomitant]
     Dosage: METLIGINE
     Route: 048
     Dates: end: 20110423
  8. RISUMIC [Concomitant]
     Dosage: PERORAL AGENT
     Route: 048
     Dates: end: 20110423
  9. KALGUT [Concomitant]
     Dosage: PERORAL AGENT
     Route: 048
     Dates: end: 20110423
  10. LANSOPRAZOLE [Concomitant]
     Dosage: PERORAL AGENT
     Route: 048
     Dates: end: 20110423
  11. SIGMART [Concomitant]
     Route: 048
     Dates: end: 20110423

REACTIONS (1)
  - ARRHYTHMIA [None]
